FAERS Safety Report 13122907 (Version 6)
Quarter: 2017Q1

REPORT INFORMATION
  Report Type: Report from Study
  Country: US (occurrence: US)
  Receive Date: 20170117
  Receipt Date: 20170331
  Transmission Date: 20170428
  Serious: Yes (Death, Hospitalization)
  Sender: FDA-Public Use
  Company Number: US-PFIZER INC-2017014180

PATIENT
  Age: 62 Year
  Sex: Male
  Weight: 49.9 kg

DRUGS (6)
  1. HYDROCODONE/ACETAMINOPHEN [Concomitant]
     Active Substance: ACETAMINOPHEN\HYDROCODONE
  2. TRIAMCINOLONE [Concomitant]
     Active Substance: TRIAMCINOLONE
  3. PALBOCICLIB [Suspect]
     Active Substance: PALBOCICLIB
     Indication: BLADDER TRANSITIONAL CELL CARCINOMA
     Dosage: 125 MG, ONCE DAILY FOR 21 DAYS, 28 DAYS CYCLE
     Route: 048
     Dates: start: 20161019, end: 20161029
  4. ACETAMINOPHEN. [Concomitant]
     Active Substance: ACETAMINOPHEN
  5. ALBUTEROL. [Concomitant]
     Active Substance: ALBUTEROL
  6. DRONABINOL. [Concomitant]
     Active Substance: DRONABINOL

REACTIONS (2)
  - Small intestinal obstruction [Recovered/Resolved]
  - Death [Fatal]

NARRATIVE: CASE EVENT DATE: 20161030
